FAERS Safety Report 5230175-6 (Version None)
Quarter: 2007Q1

REPORT INFORMATION
  Report Type: 
  Country: None (occurrence: None)
  Receive Date: 20070206
  Receipt Date: 20070124
  Transmission Date: 20070707
  Serious: Yes (Other)
  Sender: FDA-Public Use
  Company Number: GB-PFIZER INC-2007007136

PATIENT
  Age: 12 Month
  Sex: Male

DRUGS (2)
  1. ZYVOX [Suspect]
     Indication: MENINGITIS
  2. GENTAMICIN SULFATE [Suspect]
     Indication: MENINGITIS

REACTIONS (1)
  - DEAFNESS [None]
